FAERS Safety Report 22284419 (Version 2)
Quarter: 2023Q2

REPORT INFORMATION
  Report Type: Spontaneous
  Country: JP (occurrence: JP)
  Receive Date: 20230504
  Receipt Date: 20230509
  Transmission Date: 20230722
  Serious: Yes (Other)
  Sender: FDA-Public Use
  Company Number: JP-PFIZER INC-PV202200113698

PATIENT
  Age: 71 Year
  Sex: Male
  Weight: 34.5 kg

DRUGS (5)
  1. PAXLOVID [Suspect]
     Active Substance: NIRMATRELVIR\RITONAVIR
     Indication: COVID-19 treatment
     Dosage: [PF-07321332 300 MG]/[RITONAVIR 100 MG]; 2X/DAY
     Route: 048
     Dates: start: 20221126, end: 20221128
  2. LANSOPRAZOLE [Concomitant]
     Active Substance: LANSOPRAZOLE
     Dosage: 15 MG (1 TABLET), ONCE A DAY IN THE EVENING
     Route: 048
     Dates: start: 20220801
  3. VIBEGRON [Concomitant]
     Active Substance: VIBEGRON
     Dosage: 50 MG (1 TABLET), ONCE A DAY IN THE EVENING
     Route: 048
     Dates: start: 20220912, end: 20220918
  4. MAGNESIUM OXIDE [Concomitant]
     Active Substance: MAGNESIUM OXIDE
     Dosage: 250MG 6 TABLETS, 3X/DAY AFTER EVERY MEAL
     Route: 048
     Dates: start: 20220729, end: 20220809
  5. MAGNESIUM OXIDE [Concomitant]
     Active Substance: MAGNESIUM OXIDE
     Dosage: 250MG 3 TABLETS, 3X/DAY AFTER EVERY MEAL
     Route: 048
     Dates: start: 20220809

REACTIONS (6)
  - Respiratory failure [Unknown]
  - C-reactive protein increased [Unknown]
  - Aspartate aminotransferase increased [Unknown]
  - Blood sodium decreased [Unknown]
  - Blood urea increased [Unknown]
  - White blood cell count increased [Unknown]

NARRATIVE: CASE EVENT DATE: 20221128
